FAERS Safety Report 21919355 (Version 1)
Quarter: 2023Q1

REPORT INFORMATION
  Report Type: Spontaneous
  Country: US (occurrence: US)
  Receive Date: 20230127
  Receipt Date: 20230127
  Transmission Date: 20230417
  Serious: Yes (Other)
  Sender: FDA-Public Use
  Company Number: US-ALXN-A202300875

PATIENT

DRUGS (2)
  1. HUMAN IMMUNOGLOBULIN G [Suspect]
     Active Substance: HUMAN IMMUNOGLOBULIN G
     Indication: Antiphospholipid syndrome
     Dosage: UNK
     Route: 065
  2. ULTOMIRIS [Suspect]
     Active Substance: RAVULIZUMAB-CWVZ
     Indication: Atypical haemolytic uraemic syndrome
     Dosage: UNK
     Route: 065

REACTIONS (3)
  - Antiphospholipid syndrome [Unknown]
  - Atypical haemolytic uraemic syndrome [Unknown]
  - Condition aggravated [Unknown]
